FAERS Safety Report 25286107 (Version 1)
Quarter: 2025Q2

REPORT INFORMATION
  Report Type: Spontaneous
  Country: CA (occurrence: CA)
  Receive Date: 20250509
  Receipt Date: 20250509
  Transmission Date: 20250716
  Serious: Yes (Other)
  Sender: CELLTRION
  Company Number: CA-CELLTRION INC.-2024CA027898

PATIENT

DRUGS (2)
  1. STEQEYMA [Suspect]
     Active Substance: USTEKINUMAB-STBA
     Indication: Crohn^s disease
     Dosage: 90 MG EVERY 4 WEEKS
     Route: 058
     Dates: start: 20241114
  2. STEQEYMA [Suspect]
     Active Substance: USTEKINUMAB-STBA
     Dosage: 90 MG EVERY 4 WEEKS
     Route: 058
     Dates: start: 20250108

REACTIONS (3)
  - Diarrhoea [Recovered/Resolved]
  - Loss of therapeutic response [Unknown]
  - Off label use [Unknown]

NARRATIVE: CASE EVENT DATE: 20241104
